FAERS Safety Report 24216161 (Version 2)
Quarter: 2024Q3

REPORT INFORMATION
  Report Type: Spontaneous
  Country: AU (occurrence: AU)
  Receive Date: 20240816
  Receipt Date: 20240912
  Transmission Date: 20241017
  Serious: Yes (Death, Hospitalization)
  Sender: RECORDATI
  Company Number: AU-RECORDATI RARE DISEASE INC.-2024006125

PATIENT

DRUGS (4)
  1. ISTURISA [Suspect]
     Active Substance: OSILODROSTAT PHOSPHATE
     Indication: Cushing^s syndrome
     Dosage: 10 MG, BID
     Route: 048
     Dates: start: 20240724, end: 20240731
  2. ISTURISA [Suspect]
     Active Substance: OSILODROSTAT PHOSPHATE
     Indication: Neuroendocrine tumour of the rectum
  3. ISTURISA [Suspect]
     Active Substance: OSILODROSTAT PHOSPHATE
     Indication: Neuroendocrine carcinoma metastatic
  4. ISTURISA [Suspect]
     Active Substance: OSILODROSTAT PHOSPHATE
     Indication: Ectopic ACTH syndrome

REACTIONS (2)
  - Mental status changes [Unknown]
  - Disease progression [Fatal]

NARRATIVE: CASE EVENT DATE: 20240101
